FAERS Safety Report 8326429-7 (Version None)
Quarter: 2012Q2

REPORT INFORMATION
  Report Type: 
  Country: None (occurrence: None)
  Receive Date: 20120501
  Receipt Date: 20120424
  Transmission Date: 20120825
  Serious: Yes (Other)
  Sender: FDA-Public Use
  Company Number: JP-VERTEX PHARMACEUTICALS INC.-AE-2012-001421

PATIENT
  Age: 70 Year
  Sex: Female

DRUGS (7)
  1. RIBAVIRIN [Concomitant]
     Route: 048
     Dates: start: 20120105, end: 20120111
  2. RIBAVIRIN [Concomitant]
     Route: 048
     Dates: start: 20120112, end: 20120221
  3. TELAVIC (TELAPREVIR) [Suspect]
     Indication: HEPATITIS C
     Route: 048
     Dates: start: 20111216, end: 20111218
  4. PEGINTERFERON ALFA-2B [Concomitant]
     Indication: HEPATITIS C
     Route: 058
     Dates: start: 20111216, end: 20120131
  5. TELAVIC (TELAPREVIR) [Suspect]
     Route: 048
     Dates: start: 20111219, end: 20120221
  6. RIBAVIRIN [Concomitant]
     Indication: HEPATITIS C
     Route: 048
     Dates: start: 20111216, end: 20120104
  7. PEGINTERFERON ALFA-2B [Concomitant]
     Route: 058
     Dates: start: 20120207, end: 20120214

REACTIONS (6)
  - ANAEMIA [None]
  - NAUSEA [None]
  - DECREASED APPETITE [None]
  - PRURITUS [None]
  - HYPERURICAEMIA [None]
  - RETINAL HAEMORRHAGE [None]
